FAERS Safety Report 9927936 (Version 3)
Quarter: 2014Q1

REPORT INFORMATION
  Report Type: Spontaneous
  Country: US (occurrence: US)
  Receive Date: 20140227
  Receipt Date: 20140331
  Transmission Date: 20141002
  Serious: No
  Sender: FDA-Public Use
  Company Number: US-PFIZER INC-2014052546

PATIENT
  Age: 53 Year
  Sex: Female
  Weight: 160 kg

DRUGS (1)
  1. ESTRING [Suspect]
     Indication: MENOPAUSAL SYMPTOMS
     Dosage: UNK
     Route: 067
     Dates: start: 20131211

REACTIONS (3)
  - Expired drug administered [Unknown]
  - Vulvovaginal discomfort [Recovered/Resolved]
  - Product quality issue [Unknown]
